FAERS Safety Report 25125201 (Version 1)
Quarter: 2025Q1

REPORT INFORMATION
  Report Type: Spontaneous
  Country: FR (occurrence: FR)
  Receive Date: 20250326
  Receipt Date: 20250326
  Transmission Date: 20250409
  Serious: Yes (Hospitalization, Other)
  Sender: MYLAN
  Company Number: None

PATIENT
  Age: 38 Year
  Sex: Female

DRUGS (24)
  1. PREGABALIN [Suspect]
     Active Substance: PREGABALIN
     Indication: Product used for unknown indication
  2. PREGABALIN [Suspect]
     Active Substance: PREGABALIN
     Route: 065
  3. PREGABALIN [Suspect]
     Active Substance: PREGABALIN
     Route: 065
  4. PREGABALIN [Suspect]
     Active Substance: PREGABALIN
  5. COCAINE [Suspect]
     Active Substance: COCAINE
     Indication: Product used for unknown indication
  6. COCAINE [Suspect]
     Active Substance: COCAINE
  7. COCAINE [Suspect]
     Active Substance: COCAINE
     Route: 065
  8. COCAINE [Suspect]
     Active Substance: COCAINE
     Route: 065
  9. COCAINE [Suspect]
     Active Substance: COCAINE
  10. COCAINE [Suspect]
     Active Substance: COCAINE
  11. COCAINE [Suspect]
     Active Substance: COCAINE
     Route: 065
  12. COCAINE [Suspect]
     Active Substance: COCAINE
     Route: 065
  13. COCAINE [Suspect]
     Active Substance: COCAINE
     Indication: Product used for unknown indication
  14. COCAINE [Suspect]
     Active Substance: COCAINE
  15. COCAINE [Suspect]
     Active Substance: COCAINE
     Route: 065
  16. COCAINE [Suspect]
     Active Substance: COCAINE
     Route: 065
  17. COCAINE [Suspect]
     Active Substance: COCAINE
  18. COCAINE [Suspect]
     Active Substance: COCAINE
  19. COCAINE [Suspect]
     Active Substance: COCAINE
     Route: 065
  20. COCAINE [Suspect]
     Active Substance: COCAINE
     Route: 065
  21. MORPHINE [Suspect]
     Active Substance: MORPHINE
     Indication: Product used for unknown indication
  22. MORPHINE [Suspect]
     Active Substance: MORPHINE
     Route: 065
  23. MORPHINE [Suspect]
     Active Substance: MORPHINE
     Route: 065
  24. MORPHINE [Suspect]
     Active Substance: MORPHINE

REACTIONS (6)
  - Chest pain [Recovering/Resolving]
  - Drug dependence [Recovering/Resolving]
  - Hyperhidrosis [Recovering/Resolving]
  - Dyspnoea [Recovering/Resolving]
  - Cough [Recovering/Resolving]
  - Chills [Recovering/Resolving]
